FAERS Safety Report 12419463 (Version 1)
Quarter: 2016Q2

REPORT INFORMATION
  Report Type: Spontaneous
  Country: None (occurrence: None)
  Receive Date: 20160527
  Receipt Date: 20160527
  Transmission Date: 20160815
  Serious: Yes (Other)
  Sender: FDA-Public Use
  Company Number: None

PATIENT
  Age: 14 Year
  Sex: Male
  Weight: 41 kg

DRUGS (2)
  1. FILGRASTIM (NEUPOGEN) [Concomitant]
  2. BLEOMYCIN [Suspect]
     Active Substance: BLEOMYCIN SULFATE
     Indication: HODGKIN^S DISEASE
     Route: 042
     Dates: start: 20160323, end: 20160512

REACTIONS (3)
  - Chills [None]
  - Hypotension [None]
  - Pyrexia [None]

NARRATIVE: CASE EVENT DATE: 20160512
